FAERS Safety Report 24311094 (Version 1)
Quarter: 2024Q3

REPORT INFORMATION
  Report Type: Spontaneous
  Country: GR (occurrence: None)
  Receive Date: 20240912
  Receipt Date: 20240912
  Transmission Date: 20241016
  Serious: Yes (Other)
  Sender: ASTRAZENECA
  Company Number: 2024A203790

PATIENT
  Age: 65 Year
  Sex: Male

DRUGS (1)
  1. DAPAGLIFLOZIN [Suspect]
     Active Substance: DAPAGLIFLOZIN
     Indication: Heart failure with preserved ejection fraction
     Dosage: 10.0MG UNKNOWN
     Route: 048

REACTIONS (1)
  - Bladder cancer [Unknown]
